FAERS Safety Report 9652873 (Version 1)
Quarter: 2013Q4

REPORT INFORMATION
  Report Type: Spontaneous
  Country: US (occurrence: None)
  Receive Date: 20131028
  Receipt Date: 20131028
  Transmission Date: 20140711
  Serious: Yes (Other)
  Sender: FDA-Public Use
  Company Number: None

PATIENT
  Age: 61 Year
  Sex: Male
  Weight: 79.38 kg

DRUGS (2)
  1. FORTESTA [Suspect]
     Indication: BLOOD TESTOSTERONE DECREASED
     Dosage: 3 PMPS ONCE DAILY APPLIED TO A SURFACE, USUALLY THE SKIN
     Dates: start: 20130517, end: 20131021
  2. FORTESTA [Suspect]
     Dosage: 3 PMPS ONCE DAILY APPLIED TO A SURFACE, USUALLY THE SKIN
     Dates: start: 20130517, end: 20131021

REACTIONS (10)
  - Amnesia [None]
  - Cognitive disorder [None]
  - Panic reaction [None]
  - Irritability [None]
  - Condition aggravated [None]
  - Depression [None]
  - Skin irritation [None]
  - Erythema [None]
  - Chemical burn of skin [None]
  - Application site burn [None]
